FAERS Safety Report 14972425 (Version 1)
Quarter: 2018Q2

REPORT INFORMATION
  Report Type: Spontaneous
  Country: FR (occurrence: FR)
  Receive Date: 20180605
  Receipt Date: 20180605
  Transmission Date: 20180711
  Serious: Yes (Death, Other)
  Sender: FDA-Public Use
  Company Number: FR-TEVA-2018-FR-902095

PATIENT
  Age: 37 Year
  Sex: Female
  Weight: 45.6 kg

DRUGS (13)
  1. OLANZAPINE. [Suspect]
     Active Substance: OLANZAPINE
     Dosage: UNKNOWN
     Route: 048
     Dates: start: 20150720, end: 20150720
  2. LYSANXIA [Concomitant]
     Active Substance: PRAZEPAM
     Indication: PRODUCT USED FOR UNKNOWN INDICATION
     Dosage: UNK
     Route: 048
     Dates: start: 20120106, end: 20150223
  3. ATARAX [Concomitant]
     Active Substance: HYDROXYZINE HYDROCHLORIDE
     Indication: PRODUCT USED FOR UNKNOWN INDICATION
     Dosage: UNK
     Route: 048
     Dates: start: 20150106
  4. ABILIFY [Suspect]
     Active Substance: ARIPIPRAZOLE
     Dosage: 15 MG, UNK
     Route: 048
     Dates: start: 20150224, end: 20150227
  5. XEROQUEL [Suspect]
     Active Substance: QUETIAPINE FUMARATE
     Indication: ABNORMAL BEHAVIOUR
     Dosage: UNKNOWN
     Route: 048
     Dates: start: 20130402, end: 20150206
  6. DEPAKOTE [Concomitant]
     Active Substance: DIVALPROEX SODIUM
     Indication: PRODUCT USED FOR UNKNOWN INDICATION
     Dosage: UNK
     Route: 065
     Dates: start: 20140711, end: 20150116
  7. THERALENE [Suspect]
     Active Substance: TRIMEPRAZINE
     Indication: PRODUCT USED FOR UNKNOWN INDICATION
     Dosage: UNK
     Route: 048
     Dates: start: 20140610, end: 20150303
  8. ZOPICLONE [Concomitant]
     Active Substance: ZOPICLONE
     Indication: PRODUCT USED FOR UNKNOWN INDICATION
     Dosage: UNK
     Route: 048
     Dates: start: 20150124
  9. LOXAPAC [Concomitant]
     Active Substance: LOXAPINE
     Indication: ABNORMAL BEHAVIOUR
     Dosage: UNK
     Route: 048
     Dates: start: 20120106, end: 20150206
  10. ABILIFY [Suspect]
     Active Substance: ARIPIPRAZOLE
     Indication: ABNORMAL BEHAVIOUR
     Dosage: UNK
     Route: 048
     Dates: start: 20150117, end: 20150223
  11. XEROQUEL [Suspect]
     Active Substance: QUETIAPINE FUMARATE
     Dosage: UNKNOWN
     Route: 048
     Dates: start: 20120402, end: 20150206
  12. VALIUM [Concomitant]
     Active Substance: DIAZEPAM
     Indication: PRODUCT USED FOR UNKNOWN INDICATION
     Dosage: UNK
     Route: 048
     Dates: start: 20150213
  13. PARKINANE [Concomitant]
     Active Substance: TRIHEXYPHENIDYL HYDROCHLORIDE
     Indication: PRODUCT USED FOR UNKNOWN INDICATION
     Dosage: UNK
     Route: 065
     Dates: start: 20120619, end: 20150227

REACTIONS (5)
  - Extrapyramidal disorder [Not Recovered/Not Resolved]
  - Off label use [Unknown]
  - Dyskinesia [Fatal]
  - Dyskinesia [Not Recovered/Not Resolved]
  - Dysphagia [Unknown]

NARRATIVE: CASE EVENT DATE: 20150206
